FAERS Safety Report 5088854-X (Version None)
Quarter: 2006Q3

REPORT INFORMATION
  Report Type: 
  Country: None (occurrence: None)
  Receive Date: 20060825
  Receipt Date: 20060721
  Transmission Date: 20061208
  Serious: Yes (Hospitalization)
  Sender: FDA-Public Use
  Company Number: US-ROCHE-456347

PATIENT
  Age: 61 Year
  Sex: Female
  Weight: 74.4 kg

DRUGS (6)
  1. CAPECITABINE [Suspect]
     Indication: BREAST CANCER METASTATIC
     Route: 048
     Dates: start: 20060616, end: 20060713
  2. BLINDED BEVACIZUMAB [Suspect]
     Indication: BREAST CANCER METASTATIC
     Route: 042
     Dates: start: 20060616, end: 20060713
  3. LEVAQUIN [Concomitant]
  4. ALBUTEROL [Concomitant]
  5. RELAFEN [Concomitant]
  6. ADVAIR DISKUS 100/50 [Concomitant]

REACTIONS (7)
  - BREAST CANCER METASTATIC [None]
  - BUNDLE BRANCH BLOCK LEFT [None]
  - CARDIOMEGALY [None]
  - DISEASE PROGRESSION [None]
  - METASTASES TO BONE [None]
  - RESPIRATORY FAILURE [None]
  - SINUS TACHYCARDIA [None]
